FAERS Safety Report 23980381 (Version 1)
Quarter: 2024Q2

REPORT INFORMATION
  Report Type: Spontaneous
  Country: KR (occurrence: KR)
  Receive Date: 20240617
  Receipt Date: 20240617
  Transmission Date: 20240716
  Serious: Yes (Other)
  Sender: FDA-Public Use
  Company Number: KR-CKD-20240610004

PATIENT
  Age: 78 Year
  Sex: Female

DRUGS (3)
  1. CLONAZEPAM [Suspect]
     Active Substance: CLONAZEPAM
     Dosage: DAILY DOSE: 1 DOSAGE FORM
     Dates: start: 20230908, end: 20230927
  2. ROXATIDINE ACETATE HYDROCHLORIDE [Concomitant]
     Active Substance: ROXATIDINE ACETATE HYDROCHLORIDE
  3. ACECLOFENAC [Concomitant]
     Active Substance: ACECLOFENAC

REACTIONS (1)
  - Toxic epidermal necrolysis [Unknown]
